FAERS Safety Report 8826343 (Version 1)
Quarter: 2012Q4

REPORT INFORMATION
  Report Type: 
  Country: US (occurrence: US)
  Receive Date: 20121005
  Receipt Date: 20121005
  Transmission Date: 20130627
  Serious: Yes (Death)
  Sender: FDA-Public Use
  Company Number: US-ROCHE-1131186

PATIENT
  Sex: Male

DRUGS (9)
  1. RITUXAN [Suspect]
     Indication: CHRONIC LYMPHOCYTIC LEUKAEMIA
     Dosage: for 9 weeks
     Route: 065
     Dates: start: 19991028
  2. FLUDARABINE [Concomitant]
  3. CYTOXAN [Concomitant]
     Route: 065
  4. TYLENOL [Concomitant]
  5. VALTREX [Concomitant]
     Route: 065
  6. GLUCOPHAGE [Concomitant]
     Route: 065
  7. NEURONTIN [Concomitant]
     Route: 065
  8. COUMADIN [Concomitant]
     Route: 065
  9. OCUVITE [Concomitant]
     Route: 065

REACTIONS (2)
  - Death [Fatal]
  - Herpes zoster [Fatal]
